FAERS Safety Report 22055697 (Version 1)
Quarter: 2023Q1

REPORT INFORMATION
  Report Type: Spontaneous
  Country: EG (occurrence: EG)
  Receive Date: 20230302
  Receipt Date: 20230302
  Transmission Date: 20230418
  Serious: Yes (Death, Other)
  Sender: FDA-Public Use
  Company Number: EG-009507513-2302EGY007539

PATIENT
  Age: 22 Year
  Sex: Male

DRUGS (3)
  1. CILASTATIN SODIUM\IMIPENEM [Suspect]
     Active Substance: CILASTATIN SODIUM\IMIPENEM
     Indication: Antibiotic therapy
     Dosage: 1 GRAM, Q8H
     Route: 042
     Dates: start: 20220426, end: 20220509
  2. MEROPENEM [Concomitant]
     Active Substance: MEROPENEM
     Indication: Antibiotic therapy
     Dosage: 1 GRAM, Q8H
     Route: 042
  3. LIOMETACEN [INDOMETACIN MEGLUMINE] [Concomitant]
     Indication: Analgesic therapy
     Dosage: Q12H
     Route: 042

REACTIONS (3)
  - Pancytopenia [Fatal]
  - Pancytopenia [Fatal]
  - Death [Fatal]

NARRATIVE: CASE EVENT DATE: 20220503
